FAERS Safety Report 6131465-5 (Version None)
Quarter: 2009Q1

REPORT INFORMATION
  Report Type: 
  Country: None (occurrence: None)
  Receive Date: 20090325
  Receipt Date: 20080804
  Transmission Date: 20090719
  Serious: Yes (Life-Threatening)
  Sender: FDA-Public Use
  Company Number: US-BRISTOL-MYERS SQUIBB COMPANY-14281174

PATIENT
  Age: 64 Year
  Sex: Male

DRUGS (3)
  1. ERBITUX [Suspect]
     Indication: TONSIL CANCER
     Dates: start: 20080714, end: 20080714
  2. BENADRYL [Concomitant]
  3. DECADRON [Concomitant]

REACTIONS (1)
  - CARDIAC ARREST [None]
